FAERS Safety Report 24750508 (Version 3)
Quarter: 2025Q3

REPORT INFORMATION
  Report Type: Spontaneous
  Country: CN (occurrence: CN)
  Receive Date: 20241218
  Receipt Date: 20250809
  Transmission Date: 20251021
  Serious: Yes (Other)
  Sender: ALEXION PHARMACEUTICALS
  Company Number: CN-AstraZeneca-CH-00768529A

PATIENT
  Age: 77 Year
  Sex: Female

DRUGS (1)
  1. DAPAGLIFLOZIN [Suspect]
     Active Substance: DAPAGLIFLOZIN
     Route: 065

REACTIONS (11)
  - Suicidal ideation [Unknown]
  - Lung neoplasm malignant [Unknown]
  - Cerebral infarction [Unknown]
  - Hemiplegia [Unknown]
  - Fall [Unknown]
  - Weight decreased [Unknown]
  - Gait inability [Unknown]
  - Asthenia [Unknown]
  - Decreased appetite [Unknown]
  - Pain [Unknown]
  - Joint swelling [Unknown]
